FAERS Safety Report 23367379 (Version 1)
Quarter: 2024Q1

REPORT INFORMATION
  Report Type: Report from Study
  Country: CA (occurrence: CA)
  Receive Date: 20240104
  Receipt Date: 20240104
  Transmission Date: 20240409
  Serious: Yes (Other)
  Sender: FDA-Public Use
  Company Number: CA-JNJFOC-20231280836

PATIENT
  Age: 46 Year
  Sex: Female
  Weight: 64 kg

DRUGS (1)
  1. REMICADE [Suspect]
     Active Substance: INFLIXIMAB
     Indication: Crohn^s disease
     Dosage: BATCH NUMBER: 23C076 EXPIRY: APR-2026
     Route: 041

REACTIONS (7)
  - Crohn^s disease [Not Recovered/Not Resolved]
  - Constipation [Unknown]
  - COVID-19 [Recovered/Resolved]
  - Road traffic accident [Recovering/Resolving]
  - Concussion [Recovering/Resolving]
  - Ligament sprain [Recovering/Resolving]
  - Post-traumatic neck syndrome [Recovering/Resolving]

NARRATIVE: CASE EVENT DATE: 20231201
